FAERS Safety Report 5480798-4 (Version None)
Quarter: 2007Q4

REPORT INFORMATION
  Report Type: 
  Country: None (occurrence: None)
  Receive Date: 20071009
  Receipt Date: 20071001
  Transmission Date: 20080405
  Serious: Yes (Hospitalization)
  Sender: FDA-Public Use
  Company Number: DE-ROXANE LABORATORIES, INC-2007-BP-22211RO

PATIENT
  Age: 64 Year
  Sex: Male

DRUGS (4)
  1. DEXAMETHASONE 0.5MG TAB [Suspect]
     Indication: TOXIC ENCEPHALOPATHY
     Route: 042
  2. GADOLINIUM DIMEGLUMINE [Suspect]
     Indication: SCAN WITH CONTRAST
     Route: 037
  3. IODINE CONTRAST MEDIUM [Concomitant]
     Indication: SCAN WITH CONTRAST
     Route: 037
  4. ANTIPSYCHOTIC MEDICATIONS [Concomitant]
     Indication: PSYCHOTIC DISORDER

REACTIONS (21)
  - AGGRESSION [None]
  - ANTEROGRADE AMNESIA [None]
  - APHASIA [None]
  - CONFUSIONAL STATE [None]
  - COORDINATION ABNORMAL [None]
  - DELIRIUM [None]
  - DISTURBANCE IN ATTENTION [None]
  - DISTURBANCE IN SOCIAL BEHAVIOUR [None]
  - DRUG INEFFECTIVE [None]
  - DYSARTHRIA [None]
  - HALLUCINATION, AUDITORY [None]
  - HALLUCINATION, VISUAL [None]
  - INCORRECT ROUTE OF DRUG ADMINISTRATION [None]
  - NAUSEA [None]
  - NYSTAGMUS [None]
  - PSYCHOTIC DISORDER [None]
  - SOMNOLENCE [None]
  - TOXIC ENCEPHALOPATHY [None]
  - UNRESPONSIVE TO STIMULI [None]
  - VISION BLURRED [None]
  - VOMITING [None]
